FAERS Safety Report 10873772 (Version 1)
Quarter: 2015Q1

REPORT INFORMATION
  Report Type: Spontaneous
  Country: US (occurrence: None)
  Receive Date: 20150223
  Receipt Date: 20150223
  Transmission Date: 20150721
  Serious: Yes (Hospitalization)
  Sender: FDA-Public Use
  Company Number: None

PATIENT
  Age: 63 Year
  Sex: Female
  Weight: 78 kg

DRUGS (5)
  1. BEVACIZUMAB (RHUMAB VEGF) [Suspect]
     Active Substance: BEVACIZUMAB
     Dates: end: 20150129
  2. VYTORIN [Concomitant]
     Active Substance: EZETIMIBE\SIMVASTATIN
  3. CARBOPLATIN. [Suspect]
     Active Substance: CARBOPLATIN
     Dates: end: 20150129
  4. TAXOL [Suspect]
     Active Substance: PACLITAXEL
     Dates: end: 20150129
  5. ATENOLOL. [Concomitant]
     Active Substance: ATENOLOL

REACTIONS (7)
  - Hypophagia [None]
  - Fluid intake reduced [None]
  - Female genital tract fistula [None]
  - Diarrhoea [None]
  - Incontinence [None]
  - Abscess [None]
  - Bedridden [None]

NARRATIVE: CASE EVENT DATE: 20150205
